FAERS Safety Report 18540542 (Version 2)
Quarter: 2020Q4

REPORT INFORMATION
  Report Type: Report from Study
  Country: US (occurrence: US)
  Receive Date: 20201124
  Receipt Date: 20201201
  Transmission Date: 20210114
  Serious: Yes (Hospitalization)
  Sender: FDA-Public Use
  Company Number: US-JNJFOC-20201138263

PATIENT
  Age: 14 Year
  Sex: Female
  Weight: 43.5 kg

DRUGS (11)
  1. CYPROHEPTADINE. [Concomitant]
     Active Substance: CYPROHEPTADINE
  2. MULTIVITAMINS [VITAMINS NOS] [Concomitant]
     Active Substance: VITAMINS
  3. INFLIXIMAB, RECOMBINANT [Suspect]
     Active Substance: INFLIXIMAB
     Indication: INFLAMMATORY BOWEL DISEASE
     Route: 042
     Dates: start: 201203
  4. VITAMIN D [ERGOCALCIFEROL] [Concomitant]
     Active Substance: ERGOCALCIFEROL
  5. TRAMADOL. [Concomitant]
     Active Substance: TRAMADOL
  6. FORMOTEROL;MOMETASONE [Concomitant]
     Active Substance: FORMOTEROL\MOMETASONE
  7. ILARIS [Concomitant]
     Active Substance: CANAKINUMAB
     Indication: INFLAMMATORY BOWEL DISEASE
     Dates: start: 202005
  8. ENTYVIO [Concomitant]
     Active Substance: VEDOLIZUMAB
     Indication: INFLAMMATORY BOWEL DISEASE
     Dates: start: 20190225
  9. PROTOPIC [Concomitant]
     Active Substance: TACROLIMUS
     Indication: INFLAMMATORY BOWEL DISEASE
     Route: 054
  10. AMITRIPTYLINE [Concomitant]
     Active Substance: AMITRIPTYLINE
  11. HYDROXYZINE [Concomitant]
     Active Substance: HYDROXYZINE HYDROCHLORIDE

REACTIONS (1)
  - Amplified musculoskeletal pain syndrome [Recovered/Resolved]

NARRATIVE: CASE EVENT DATE: 202011
